FAERS Safety Report 7543183-7 (Version None)
Quarter: 2011Q2

REPORT INFORMATION
  Report Type: 
  Country: None (occurrence: None)
  Receive Date: 20110613
  Receipt Date: 20110609
  Transmission Date: 20111010
  Serious: Yes (Life-Threatening, Hospitalization)
  Sender: FDA-Public Use
  Company Number: FR-MERCK-1103FRA00062

PATIENT
  Age: 78 Year
  Sex: Female
  Weight: 57 kg

DRUGS (7)
  1. ZOLPIDEM TARTRATE [Concomitant]
     Route: 065
  2. JANUVIA [Suspect]
     Indication: TYPE 2 DIABETES MELLITUS
     Route: 048
  3. MEMANTINE HYDROCHLORIDE [Suspect]
     Indication: DEMENTIA ALZHEIMER'S TYPE
     Route: 048
     Dates: start: 20100301, end: 20101125
  4. DONEPEZIL HYDROCHLORIDE [Suspect]
     Route: 048
     Dates: start: 20101101
  5. MEMANTINE HYDROCHLORIDE [Suspect]
     Route: 048
     Dates: start: 20101101
  6. MEMANTINE HYDROCHLORIDE [Suspect]
     Indication: DEMENTIA ALZHEIMER'S TYPE
     Route: 048
     Dates: start: 20100301, end: 20101125
  7. PERINDOPRIL ARGININE [Concomitant]
     Indication: HYPERTENSION
     Route: 065
     Dates: start: 20100301

REACTIONS (2)
  - BRADYCARDIA [None]
  - SINOATRIAL BLOCK [None]
